FAERS Safety Report 9809110 (Version 1)
Quarter: 2014Q1

REPORT INFORMATION
  Report Type: Spontaneous
  Country: GB (occurrence: GB)
  Receive Date: 20140110
  Receipt Date: 20140110
  Transmission Date: 20141002
  Serious: Yes (Hospitalization)
  Sender: FDA-Public Use
  Company Number: CHNY2013GB002988

PATIENT
  Sex: 0

DRUGS (3)
  1. OTRIVINE ADULT MEASURED DOSE SINUSITIS SPRAY [Suspect]
     Indication: NASAL CONGESTION
     Dosage: DF, UNK
     Route: 045
     Dates: start: 20131218, end: 20131218
  2. IBUPROFEN [Concomitant]
  3. PARACETAMOL [Concomitant]

REACTIONS (2)
  - Dystonia [Recovered/Resolved]
  - Oculogyric crisis [Recovered/Resolved]
